FAERS Safety Report 7292498-9 (Version None)
Quarter: 2011Q1

REPORT INFORMATION
  Report Type: 
  Country: None (occurrence: None)
  Receive Date: 20110215
  Receipt Date: 20110202
  Transmission Date: 20110831
  Serious: Yes (Death, Life-Threatening)
  Sender: FDA-Public Use
  Company Number: ES-CELGENEUS-144-21880-10051931

PATIENT
  Sex: Male

DRUGS (5)
  1. LMWH [Concomitant]
     Indication: THROMBOSIS PROPHYLAXIS
     Route: 065
  2. GENOXAL [Suspect]
     Route: 065
     Dates: start: 20100301
  3. DEXAMETHASONE [Suspect]
     Indication: MULTIPLE MYELOMA
     Route: 065
     Dates: start: 20090924
  4. REVLIMID [Suspect]
     Indication: MULTIPLE MYELOMA
     Route: 048
     Dates: start: 20090924
  5. REVLIMID [Suspect]
     Route: 048

REACTIONS (5)
  - ANAEMIA [None]
  - SEPSIS [None]
  - NEUTROPENIA [None]
  - MULTIPLE MYELOMA [None]
  - FEBRILE NEUTROPENIA [None]
